FAERS Safety Report 17198743 (Version 2)
Quarter: 2020Q1

REPORT INFORMATION
  Report Type: Report from Study
  Country: None (occurrence: US)
  Receive Date: 20191225
  Receipt Date: 20200117
  Transmission Date: 20200409
  Serious: Yes (Disabling)
  Sender: FDA-Public Use
  Company Number: US-INSMED, INC.-US-INS-19-03235

PATIENT
  Sex: Female

DRUGS (3)
  1. LAMIRA NEBULIZER SYSTEM [Suspect]
     Active Substance: DEVICE
  2. ARIKAYCE [Suspect]
     Active Substance: AMIKACIN
     Route: 055
     Dates: start: 2019, end: 201910
  3. ARIKAYCE [Suspect]
     Active Substance: AMIKACIN
     Indication: ATYPICAL MYCOBACTERIAL INFECTION
     Route: 055
     Dates: start: 20190616, end: 2019

REACTIONS (3)
  - Dysphonia [Recovered/Resolved]
  - Off label use [Unknown]
  - Deafness permanent [Not Recovered/Not Resolved]

NARRATIVE: CASE EVENT DATE: 2019
